FAERS Safety Report 14603505 (Version 3)
Quarter: 2020Q3

REPORT INFORMATION
  Report Type: Report from Study
  Country: ES (occurrence: ES)
  Receive Date: 20180306
  Receipt Date: 20180413
  Transmission Date: 20201104
  Serious: Yes (Hospitalization)
  Sender: FDA-Public Use
  Company Number: ES-JNJFOC-20180231261

PATIENT
  Age: 61 Year
  Sex: Male
  Weight: 74 kg

DRUGS (2)
  1. GUSELKUMAB [Suspect]
     Active Substance: GUSELKUMAB
     Indication: PSORIASIS
     Route: 058
     Dates: start: 20150311
  2. GUSELKUMAB [Suspect]
     Active Substance: GUSELKUMAB
     Route: 058

REACTIONS (2)
  - Chronic obstructive pulmonary disease [Recovered/Resolved]
  - Influenza [Recovered/Resolved]

NARRATIVE: CASE EVENT DATE: 20180216
